FAERS Safety Report 21899346 (Version 1)
Quarter: 2023Q1

REPORT INFORMATION
  Report Type: Spontaneous
  Country: US (occurrence: US)
  Receive Date: 20230123
  Receipt Date: 20230123
  Transmission Date: 20230418
  Serious: Yes (Other)
  Sender: FDA-Public Use
  Company Number: US-GLAXOSMITHKLINE-USCH2023GSK003093

PATIENT

DRUGS (4)
  1. TERBINAFINE [Suspect]
     Active Substance: TERBINAFINE
     Indication: Skin necrosis
     Dosage: UNK
  2. VORICONAZOLE [Concomitant]
     Active Substance: VORICONAZOLE
     Indication: Prophylaxis
     Dosage: UNK
  3. AMPHOTERICIN B [Concomitant]
     Active Substance: AMPHOTERICIN B
     Indication: Skin necrosis
     Dosage: UNK
  4. POSACONAZOLE [Concomitant]
     Active Substance: POSACONAZOLE
     Indication: Prophylaxis
     Dosage: UNK
     Route: 042

REACTIONS (1)
  - Hypertransaminasaemia [Unknown]
